FAERS Safety Report 7359441-5 (Version None)
Quarter: 2011Q1

REPORT INFORMATION
  Report Type: 
  Country: None (occurrence: None)
  Receive Date: 20110317
  Receipt Date: 20091125
  Transmission Date: 20110831
  Serious: No
  Sender: FDA-Public Use
  Company Number: US-PFIZER INC-2009303221

PATIENT
  Sex: Female
  Weight: 62.585 kg

DRUGS (3)
  1. FELODIPINE [Suspect]
     Dates: start: 20090101
  2. NORVASC [Suspect]
     Indication: HYPERTENSION
     Dosage: 5 MG, UNK
     Route: 048
     Dates: end: 20090101
  3. AMLODIPINE/VALSARTAN [Concomitant]
     Dosage: UNK

REACTIONS (1)
  - SWELLING [None]
